FAERS Safety Report 8394622-3 (Version None)
Quarter: 2012Q2

REPORT INFORMATION
  Report Type: 
  Country: None (occurrence: None)
  Receive Date: 20120530
  Receipt Date: 20120522
  Transmission Date: 20120825
  Serious: Yes (Hospitalization)
  Sender: FDA-Public Use
  Company Number: CA-JNJFOC-20120517510

PATIENT
  Sex: Female
  Weight: 91.17 kg

DRUGS (2)
  1. REMICADE [Suspect]
     Indication: SCLERITIS
     Route: 042
     Dates: start: 20120411
  2. REMICADE [Suspect]
     Indication: UVEITIS
     Route: 042
     Dates: start: 20120411

REACTIONS (1)
  - FALL [None]
